FAERS Safety Report 6310031-2 (Version None)
Quarter: 2009Q3

REPORT INFORMATION
  Report Type: 
  Country: None (occurrence: None)
  Receive Date: 20090811
  Receipt Date: 20090729
  Transmission Date: 20100115
  Serious: Yes (Hospitalization, Other)
  Sender: FDA-Public Use
  Company Number: 235175K09USA

PATIENT
  Age: 56 Year
  Sex: Female

DRUGS (3)
  1. REBIF [Suspect]
     Indication: MULTIPLE SCLEROSIS
     Dosage: 44 MCG, 3 IN 1 WEEKS, SUBCUTANEOUS
     Route: 058
     Dates: start: 20050222, end: 20090501
  2. MOTRIN [Concomitant]
  3. STEROID (CORTICOSTEROID NOS) [Concomitant]

REACTIONS (2)
  - VAGINAL CANCER [None]
  - WHITE BLOOD CELL COUNT DECREASED [None]
